FAERS Safety Report 9015942 (Version 2)
Quarter: 2013Q1

REPORT INFORMATION
  Report Type: Spontaneous
  Country: IL (occurrence: IL)
  Receive Date: 20130116
  Receipt Date: 20130131
  Transmission Date: 20140127
  Serious: Yes (Hospitalization, Other)
  Sender: FDA-Public Use
  Company Number: IL-ROCHE-1177523

PATIENT
  Age: 73 Year
  Sex: Female

DRUGS (3)
  1. LUCENTIS [Suspect]
     Indication: DIABETIC RETINAL OEDEMA
     Route: 050
     Dates: start: 20121122
  2. LUCENTIS [Suspect]
     Route: 050
     Dates: start: 20121230
  3. AVASTIN [Suspect]
     Indication: DIABETIC RETINAL OEDEMA
     Route: 065

REACTIONS (2)
  - Endophthalmitis [Not Recovered/Not Resolved]
  - Purulence [Unknown]
